FAERS Safety Report 4950372-4 (Version None)
Quarter: 2006Q1

REPORT INFORMATION
  Report Type: 
  Country: None (occurrence: None)
  Receive Date: 20060322
  Receipt Date: 20060310
  Transmission Date: 20060701
  Serious: Yes (Other)
  Sender: FDA-Public Use
  Company Number: JP-JNJFOC-20060302781

PATIENT
  Age: 48 Year
  Sex: Female

DRUGS (10)
  1. INFLIXIMAB [Suspect]
     Indication: SCLERODERMA
     Route: 042
  2. INFLIXIMAB [Suspect]
     Indication: RHEUMATOID ARTHRITIS
     Dosage: PATIENT RECEIVED AT LEAST 6 DOSES.
     Route: 042
  3. NON-STEROIDAL ANTI-INFLAMMATORY DRUGS [Concomitant]
     Indication: SCLERODERMA
  4. NON-STEROIDAL ANTI-INFLAMMATORY DRUGS [Concomitant]
     Indication: RHEUMATOID ARTHRITIS
  5. PREDNISOLONE [Concomitant]
     Indication: SCLERODERMA
  6. PREDNISOLONE [Concomitant]
     Indication: RHEUMATOID ARTHRITIS
  7. METHOTREXATE [Concomitant]
     Indication: SCLERODERMA
  8. METHOTREXATE [Concomitant]
     Indication: RHEUMATOID ARTHRITIS
  9. MIZORIBINE [Concomitant]
     Indication: SCLERODERMA
  10. MIZORIBINE [Concomitant]
     Indication: RHEUMATOID ARTHRITIS

REACTIONS (1)
  - ANTIPHOSPHOLIPID SYNDROME [None]
